FAERS Safety Report 7664997-9 (Version None)
Quarter: 2011Q3

REPORT INFORMATION
  Report Type: 
  Country: None (occurrence: None)
  Receive Date: 20110806
  Receipt Date: 20110210
  Transmission Date: 20111222
  Serious: No
  Sender: FDA-Public Use
  Company Number: US-ABBOTT-10P-163-0694445-00

PATIENT
  Sex: Female

DRUGS (2)
  1. NIASPAN [Suspect]
     Indication: HYPERLIPIDAEMIA
     Dates: start: 20100630
  2. NIASPAN [Suspect]
     Dates: start: 20101201

REACTIONS (4)
  - URTICARIA [None]
  - PRURITUS [None]
  - FLUSHING [None]
  - FEELING HOT [None]
